FAERS Safety Report 7885032-3 (Version None)
Quarter: 2011Q4

REPORT INFORMATION
  Report Type: 
  Country: None (occurrence: None)
  Receive Date: 20111102
  Receipt Date: 20100729
  Transmission Date: 20120403
  Serious: No
  Sender: FDA-Public Use
  Company Number: US-BAYER-201029530NA

PATIENT
  Sex: Female

DRUGS (1)
  1. AVELOX [Suspect]

REACTIONS (5)
  - PAIN [None]
  - JOINT SWELLING [None]
  - FATIGUE [None]
  - DIZZINESS [None]
  - ABNORMAL DREAMS [None]
